FAERS Safety Report 18151984 (Version 7)
Quarter: 2021Q2

REPORT INFORMATION
  Report Type: Spontaneous
  Country: AT (occurrence: AT)
  Receive Date: 20200814
  Receipt Date: 20210630
  Transmission Date: 20210717
  Serious: Yes (Hospitalization)
  Sender: FDA-Public Use
  Company Number: AT-CELGENEUS-AUT-20200801964

PATIENT
  Age: 83 Year
  Sex: Female
  Weight: 71 kg

DRUGS (25)
  1. FLUCONAZOLE. [Concomitant]
     Active Substance: FLUCONAZOLE
     Indication: ANTIFUNGAL PROPHYLAXIS
     Dosage: 200 MILLIGRAM
     Route: 048
     Dates: start: 20180108
  2. PANPRABENE [Concomitant]
     Indication: PROPHYLAXIS
     Dosage: 20 MILLIGRAM
     Route: 048
     Dates: start: 20171223
  3. ELIQUIS [Concomitant]
     Active Substance: APIXABAN
     Indication: THROMBOSIS PROPHYLAXIS
     Dosage: 5 MILLIGRAM
     Route: 048
     Dates: start: 20190305, end: 20200706
  4. ELOZELL [Concomitant]
     Indication: ATRIAL FLUTTER
     Dosage: 500 MILLILITER
     Route: 041
     Dates: start: 20180504, end: 20180505
  5. MEFENABENE [Concomitant]
     Indication: OSTEOARTHRITIS
     Route: 048
     Dates: start: 20171223
  6. MOLAXOLE [Concomitant]
     Active Substance: POLYETHYLENE GLYCOL 3350\POTASSIUM CHLORIDE\SODIUM BICARBONATE\SODIUM CHLORIDE
     Indication: CONSTIPATION PROPHYLAXIS
     Dosage: 1 PLV BTL
     Route: 048
     Dates: start: 20180115
  7. EUTHYROX [Concomitant]
     Active Substance: LEVOTHYROXINE SODIUM
     Indication: HYPOTHYROIDISM
     Dosage: 50 MICROGRAM
     Route: 048
     Dates: start: 20180609
  8. BISOPROLOL FUMARATE. [Concomitant]
     Active Substance: BISOPROLOL FUMARATE
     Indication: HYPERTENSION
     Dosage: 5 MILLIGRAM
     Route: 048
     Dates: start: 20180113, end: 20180608
  9. ZOFRAN [Concomitant]
     Active Substance: ONDANSETRON HYDROCHLORIDE
     Indication: PROPHYLAXIS OF NAUSEA AND VOMITING
     Dosage: 8 MILLIGRAM
     Route: 048
     Dates: start: 20180825, end: 20180825
  10. MAGNESIUM [Concomitant]
     Active Substance: MAGNESIUM
     Indication: ATRIAL FLUTTER
     Dosage: 2 AMPOULE
     Route: 041
     Dates: start: 20200630, end: 20200630
  11. MYCOSTATIN [Concomitant]
     Active Substance: NYSTATIN
     Indication: ANTIVIRAL PROPHYLAXIS
     Dosage: 100 MILLILITER
     Route: 048
     Dates: start: 20180530
  12. EPORATIO [Concomitant]
     Active Substance: ERYTHROPOIETIN
     Indication: ANAEMIA
     Dosage: 30000 IU (INTERNATIONAL UNIT)
     Route: 058
     Dates: start: 20200505
  13. ELIQUIS [Concomitant]
     Active Substance: APIXABAN
     Dosage: 5 MILLIGRAM
     Route: 048
     Dates: start: 20200717, end: 20200803
  14. LUTAMAX [Concomitant]
     Indication: MACULAR DEGENERATION
     Dosage: 10 MILLIGRAM
     Route: 048
     Dates: start: 2017
  15. HIRUDOID [Concomitant]
     Active Substance: GLYCOSAMINOGLYCANS
     Indication: HAEMATOMA
     Route: 061
     Dates: start: 20171228
  16. BISOPROLOL FUMARATE. [Concomitant]
     Active Substance: BISOPROLOL FUMARATE
     Dosage: 7.5 MILLIGRAM
     Route: 048
     Dates: start: 20180609
  17. AQUATEARS [Concomitant]
     Indication: DRY EYE
     Dosage: 1 DROP
     Route: 047
     Dates: start: 20180608
  18. ELOZELL [Concomitant]
     Indication: ATRIAL FIBRILLATION
     Dosage: 250 MILLILITER
     Route: 041
     Dates: start: 20200630, end: 20200630
  19. AZACITIDINE. [Suspect]
     Active Substance: AZACITIDINE
     Indication: ACUTE MYELOID LEUKAEMIA
     Dosage: 75 MILLIGRAM/SQ. METER
     Route: 058
     Dates: start: 20180109
  20. IBANDRONIC ACID. [Concomitant]
     Active Substance: IBANDRONIC ACID
     Indication: OSTEOARTHRITIS
     Dosage: 3 MILLIGRAM
     Route: 048
     Dates: start: 2017
  21. CALCIDURAN VIT D3 [Concomitant]
     Indication: OSTEOPOROSIS
     Dosage: 500 MILLIGRAM
     Route: 048
     Dates: start: 2002
  22. GLANDOMED [Concomitant]
     Indication: INFECTION PROPHYLAXIS
     Dosage: 100 MILLILITER
     Route: 048
     Dates: start: 20180530
  23. ZOFRAN [Concomitant]
     Active Substance: ONDANSETRON HYDROCHLORIDE
     Dosage: 8 MILLIGRAM
     Route: 048
     Dates: start: 20180826
  24. ZOFRAN [Concomitant]
     Active Substance: ONDANSETRON HYDROCHLORIDE
     Route: 048
     Dates: start: 20200827
  25. NEULASTA [Concomitant]
     Active Substance: PEGFILGRASTIM
     Indication: PROPHYLAXIS
     Dosage: 6 MILLIGRAM
     Route: 058
     Dates: start: 20200708, end: 20200708

REACTIONS (2)
  - Atrial flutter [Recovered/Resolved]
  - Diarrhoea [Recovered/Resolved]

NARRATIVE: CASE EVENT DATE: 20200803
